FAERS Safety Report 9522474 (Version 1)
Quarter: 2013Q1

REPORT INFORMATION
  Report Type: Spontaneous
  Country: US (occurrence: None)
  Receive Date: 20130305
  Receipt Date: 20130305
  Transmission Date: 20140127
  Serious: Yes (Other)
  Sender: FDA-Public Use
  Company Number: 163-21880-12070609

PATIENT
  Age: 70 Year
  Sex: Female

DRUGS (7)
  1. REVLIMID [Suspect]
     Indication: PLASMA CELL MYELOMA
     Dosage: 25 MG , 21 IN 21 D, PO
     Route: 048
     Dates: start: 20120412
  2. MULTIVITAMINS (MULTIVITAMINS) (MULTIVITAMINS) [Concomitant]
  3. CALCIUM +D ( OS-CAL) (UNKNOWN) [Concomitant]
  4. CLOBETASOL (CLOBETASOL) (OINTMENT) [Concomitant]
  5. TESTOSTERONE (TESTOSTERONE) OINTMENT [Concomitant]
  6. ZOMETA (ZOLEDRONIC ACID) [Concomitant]
  7. BENADRYL (DIPHENHYDRAMINE) [Concomitant]

REACTIONS (6)
  - Rash [None]
  - Neuropathy peripheral [None]
  - Fatigue [None]
  - Dizziness [None]
  - Pruritus [None]
  - Contusion [None]
